FAERS Safety Report 4396061-9 (Version None)
Quarter: 2004Q2

REPORT INFORMATION
  Report Type: 
  Country: None (occurrence: None)
  Receive Date: 20040621
  Receipt Date: 20031125
  Transmission Date: 20050107
  Serious: Yes (Death)
  Sender: FDA-Public Use
  Company Number: USA-2003-0011072

PATIENT
  Age: 30 Year
  Sex: Female
  Weight: 91.2 kg

DRUGS (9)
  1. OXYCODONE HCL [Suspect]
  2. HYDROCODONE BITARTRATE [Suspect]
  3. SALICYLATES (SALICYLATES) [Suspect]
  4. AMITRIPTYLINE HCL [Suspect]
  5. CARISOPRODOL [Suspect]
  6. MEPROBAMATE [Suspect]
  7. DIPHENHYDRAMINE HCL [Suspect]
  8. NICOTINE [Concomitant]
  9. CAFFEINE (CAFFEINE) [Suspect]

REACTIONS (1)
  - INTENTIONAL OVERDOSE [None]
